FAERS Safety Report 19097856 (Version 2)
Quarter: 2021Q2

REPORT INFORMATION
  Report Type: Spontaneous
  Country: JP (occurrence: JP)
  Receive Date: 20210406
  Receipt Date: 20210422
  Transmission Date: 20210717
  Serious: Yes (Death, Hospitalization, Other)
  Sender: FDA-Public Use
  Company Number: JP-BRISTOL-MYERS SQUIBB COMPANY-BMS-2020-101177

PATIENT
  Age: 75 Year
  Sex: Female
  Weight: 50.9 kg

DRUGS (7)
  1. DAIPHEN [Suspect]
     Active Substance: SULFAMETHOXAZOLE\TRIMETHOPRIM
     Indication: NON-SMALL CELL LUNG CANCER RECURRENT
     Dosage: 1 DOSAGE FORM
     Route: 048
     Dates: start: 20200820, end: 20200916
  2. OPDIVO [Suspect]
     Active Substance: NIVOLUMAB
     Indication: NON-SMALL CELL LUNG CANCER RECURRENT
     Dosage: 240 MILLIGRAM
     Route: 041
     Dates: start: 20200630, end: 20200803
  3. MEDICON [DEXTROMETHORPHAN HYDROBROMIDE] [Concomitant]
     Active Substance: DEXTROMETHORPHAN HYDROBROMIDE
     Indication: NON-SMALL CELL LUNG CANCER RECURRENT
     Dosage: 30 MILLIGRAM, Q8H
     Route: 048
     Dates: start: 20200416, end: 20200807
  4. ETIZOLAM [Concomitant]
     Active Substance: ETIZOLAM
     Indication: NON-SMALL CELL LUNG CANCER RECURRENT
     Dosage: 0.5 MILLIGRAM, Q8H
     Route: 048
     Dates: start: 20200623, end: 20200916
  5. MAGMITT [Concomitant]
     Active Substance: MAGNESIUM OXIDE
     Indication: PROPHYLAXIS
     Dosage: 500 MILLIGRAM, Q8H
     Route: 048
     Dates: start: 20200624, end: 20200720
  6. CALONAL [Concomitant]
     Active Substance: ACETAMINOPHEN
     Indication: NON-SMALL CELL LUNG CANCER RECURRENT
     Dosage: 500 MILLIGRAM, Q8H
     Route: 048
     Dates: start: 20200518, end: 20200807
  7. LANSOPRAZOLE. [Concomitant]
     Active Substance: LANSOPRAZOLE
     Indication: PROPHYLAXIS
     Dosage: 15 MILLIGRAM, QD
     Route: 048
     Dates: start: 20200608

REACTIONS (5)
  - Malignant neoplasm progression [Fatal]
  - Infection [Fatal]
  - Drug-induced liver injury [Recovering/Resolving]
  - Colitis [Recovering/Resolving]
  - Hepatic function abnormal [Recovered/Resolved]

NARRATIVE: CASE EVENT DATE: 20200807
